FAERS Safety Report 8874600 (Version 1)
Quarter: 2012Q4

REPORT INFORMATION
  Report Type: 
  Country: GB (occurrence: GB)
  Receive Date: 20121031
  Receipt Date: 20121031
  Transmission Date: 20130627
  Serious: Yes (Other)
  Sender: FDA-Public Use
  Company Number: GB-BRISTOL-MYERS SQUIBB COMPANY-17057134

PATIENT
  Sex: Female

DRUGS (2)
  1. ONGLYZA TABS [Suspect]
  2. WARFARIN SODIUM [Suspect]

REACTIONS (1)
  - Haemorrhagic stroke [Unknown]
